FAERS Safety Report 8830209 (Version 1)
Quarter: 2012Q4

REPORT INFORMATION
  Report Type: Spontaneous
  Country: US (occurrence: None)
  Receive Date: 20121009
  Receipt Date: 20121009
  Transmission Date: 20130627
  Serious: Yes (Death, Life-Threatening, Hospitalization, Other)
  Sender: FDA-Public Use
  Company Number: None

PATIENT
  Age: 90 Year
  Sex: Female
  Weight: 48.08 kg

DRUGS (1)
  1. SOLU MEDROL [Suspect]

REACTIONS (2)
  - Meningitis [None]
  - Product quality issue [None]
